FAERS Safety Report 17135978 (Version 1)
Quarter: 2019Q4

REPORT INFORMATION
  Report Type: Spontaneous
  Country: FR (occurrence: FR)
  Receive Date: 20191210
  Receipt Date: 20191210
  Transmission Date: 20200122
  Serious: Yes (Hospitalization, Other)
  Sender: FDA-Public Use
  Company Number: FR-AMGEN-FRASP2019163885

PATIENT
  Age: 69 Year
  Sex: Female

DRUGS (3)
  1. TRASTUZUMAB. [Suspect]
     Active Substance: TRASTUZUMAB
     Indication: NON-SMALL CELL LUNG CANCER
     Dosage: 8 MILLIGRAM/KILOGRAM
     Route: 065
     Dates: start: 20190813
  2. PERTUZUMAB. [Suspect]
     Active Substance: PERTUZUMAB
     Indication: NON-SMALL CELL LUNG CANCER
     Dosage: 840 MILLIGRAM
     Route: 065
     Dates: start: 20190813
  3. DOCETAXEL. [Suspect]
     Active Substance: DOCETAXEL
     Indication: NON-SMALL CELL LUNG CANCER
     Dosage: 75 MILLIGRAM/SQ. METER
     Route: 065
     Dates: start: 20190813

REACTIONS (4)
  - Febrile neutropenia [Recovered/Resolved]
  - Off label use [Unknown]
  - Pyrexia [Not Recovered/Not Resolved]
  - Erysipelas [Recovered/Resolved]

NARRATIVE: CASE EVENT DATE: 20190908
